FAERS Safety Report 15316525 (Version 1)
Quarter: 2018Q3

REPORT INFORMATION
  Report Type: Spontaneous
  Country: US (occurrence: US)
  Receive Date: 20180824
  Receipt Date: 20180824
  Transmission Date: 20181010
  Serious: Yes (Hospitalization, Other)
  Sender: FDA-Public Use
  Company Number: US-AMGEN-USASP2018114953

PATIENT
  Age: 72 Year
  Sex: Male

DRUGS (4)
  1. PREDNISONE. [Concomitant]
     Active Substance: PREDNISONE
     Dosage: UNK
     Dates: start: 2018
  2. ENBREL [Suspect]
     Active Substance: ETANERCEPT
     Indication: RHEUMATOID ARTHRITIS
     Dosage: 50 MG, QWK
     Route: 065
  3. ENBREL [Suspect]
     Active Substance: ETANERCEPT
     Dosage: 50 MG, Q2WK
     Route: 065
  4. ENBREL [Suspect]
     Active Substance: ETANERCEPT
     Dosage: 50 MG, QWK
     Route: 065
     Dates: start: 201807

REACTIONS (12)
  - Rheumatoid arthritis [Unknown]
  - Off label use [Unknown]
  - Incisional hernia [Unknown]
  - Injection site haemorrhage [Unknown]
  - Cholelithiasis [Unknown]
  - Pericardial effusion [Recovered/Resolved]
  - Accidental exposure to product [Unknown]
  - Product storage error [Unknown]
  - Procedural complication [Unknown]
  - Sleep disorder due to a general medical condition [Unknown]
  - Cholecystitis infective [Unknown]
  - Incorrect dose administered by device [Unknown]

NARRATIVE: CASE EVENT DATE: 2018
